FAERS Safety Report 4468699-1 (Version None)
Quarter: 2004Q4

REPORT INFORMATION
  Report Type: 
  Country: None (occurrence: None)
  Receive Date: 20041007
  Receipt Date: 20041002
  Transmission Date: 20050328
  Serious: Yes (Life-Threatening, Hospitalization, Disabling, Other)
  Sender: FDA-Public Use
  Company Number: BR-MERCK-0410BRA00078

PATIENT
  Age: 23 Year
  Sex: Male

DRUGS (1)
  1. VIOXX [Suspect]
     Indication: SUTURE INSERTION
     Route: 048
     Dates: start: 20040902

REACTIONS (6)
  - CARDIAC ARREST [None]
  - DYSPNOEA [None]
  - HYPERSENSITIVITY [None]
  - LEUKOCYTOSIS [None]
  - PYREXIA [None]
  - SHOCK [None]
